FAERS Safety Report 4342285-6 (Version None)
Quarter: 2004Q2

REPORT INFORMATION
  Report Type: 
  Country: None (occurrence: None)
  Receive Date: 20040415
  Receipt Date: 20040407
  Transmission Date: 20050107
  Serious: Yes (Hospitalization)
  Sender: FDA-Public Use
  Company Number: LTI2004A00076

PATIENT
  Age: 70 Year
  Sex: Male

DRUGS (1)
  1. ACTOS [Suspect]
     Indication: DIABETES MELLITUS NON-INSULIN-DEPENDENT
     Dosage: 1 TAB. (1 TAB., 1 IN 1 D) ORAL
     Route: 048

REACTIONS (1)
  - PANCREATITIS [None]
